FAERS Safety Report 16469725 (Version 1)
Quarter: 2019Q2

REPORT INFORMATION
  Report Type: Spontaneous
  Country: US (occurrence: US)
  Receive Date: 20190514
  Receipt Date: 20190514
  Transmission Date: 20190711
  Serious: Yes (Hospitalization)
  Sender: FDA-Public Use
  Company Number: None

PATIENT
  Age: 66 Year
  Sex: Female

DRUGS (18)
  1. ALPRAZOLAM. [Concomitant]
     Active Substance: ALPRAZOLAM
  2. WELLBUTRIN TAB [Concomitant]
  3. FENTANYL DIS [Concomitant]
  4. FUROSEMIDE TAB [Concomitant]
  5. LASIX TAB [Concomitant]
  6. MORPHINE SUL [Concomitant]
     Active Substance: MORPHINE SULFATE
  7. SYNITHROID TAB [Concomitant]
  8. TYLENOL TAB [Concomitant]
  9. HUMIRA [Suspect]
     Active Substance: ADALIMUMAB
     Indication: RHEUMATOID ARTHRITIS
     Route: 058
     Dates: start: 20170713
  10. CYCLOBENZAPR TAB [Concomitant]
  11. HYDROXYZ HCL TAB [Concomitant]
  12. METHYPHENID CAP [Concomitant]
  13. POLYETHGLYC POW [Concomitant]
  14. ZOLPIDEM TAB [Concomitant]
  15. DEXILANT CAP [Concomitant]
  16. GABAPENTIN CAP [Concomitant]
  17. HUMIRA [Concomitant]
     Active Substance: ADALIMUMAB
  18. SPIRONOLACT TAB [Concomitant]

REACTIONS (1)
  - Hospitalisation [None]

NARRATIVE: CASE EVENT DATE: 20190501
